FAERS Safety Report 23805083 (Version 2)
Quarter: 2025Q1

REPORT INFORMATION
  Report Type: Report from Study
  Country: CA (occurrence: CA)
  Receive Date: 20240502
  Receipt Date: 20250120
  Transmission Date: 20250409
  Serious: Yes (Other)
  Sender: Haleon PLC
  Company Number: CA-SANDOZ-SDZ2023CA070394

PATIENT
  Age: 66 Year
  Sex: Female

DRUGS (3)
  1. DICLOFENAC SODIUM [Suspect]
     Active Substance: DICLOFENAC SODIUM
     Indication: Product used for unknown indication
     Route: 065
  2. ERELZI [Suspect]
     Active Substance: ETANERCEPT-SZZS
     Indication: Rheumatoid arthritis
     Route: 058
  3. ERELZI [Suspect]
     Active Substance: ETANERCEPT-SZZS
     Route: 058
     Dates: start: 20240110

REACTIONS (9)
  - Loss of consciousness [Unknown]
  - Malaise [Unknown]
  - Drug hypersensitivity [Unknown]
  - Pain [Unknown]
  - Sleep disorder [Unknown]
  - Fatigue [Unknown]
  - Visual impairment [Unknown]
  - Gait disturbance [Unknown]
  - Drug intolerance [Unknown]
